FAERS Safety Report 24630908 (Version 1)
Quarter: 2024Q4

REPORT INFORMATION
  Report Type: Spontaneous
  Country: GB (occurrence: GB)
  Receive Date: 20241118
  Receipt Date: 20241118
  Transmission Date: 20250115
  Serious: Yes (Death, Other)
  Sender: ALEXION PHARMACEUTICALS
  Company Number: None

PATIENT
  Age: 78 Year
  Weight: 89 kg

DRUGS (31)
  1. DAPAGLIFLOZIN [Suspect]
     Active Substance: DAPAGLIFLOZIN
     Dosage: ONE TO BE TAKEN DAILY
  2. DAPAGLIFLOZIN [Suspect]
     Active Substance: DAPAGLIFLOZIN
     Dosage: ONE TO BE TAKEN DAILY
  3. DAPAGLIFLOZIN [Suspect]
     Active Substance: DAPAGLIFLOZIN
     Dosage: ONE TO BE TAKEN DAILY
  4. DAPAGLIFLOZIN [Suspect]
     Active Substance: DAPAGLIFLOZIN
     Dosage: ONE TO BE TAKEN DAILY
  5. CLOTRIMAZOLE [Concomitant]
     Active Substance: CLOTRIMAZOLE
     Indication: Type 2 diabetes mellitus
     Dosage: APPLY TWICE A DAY
  6. CLOTRIMAZOLE [Concomitant]
     Active Substance: CLOTRIMAZOLE
     Dosage: APPLY TWICE A DAY
     Route: 065
  7. HYDROCORTISONE [Concomitant]
     Active Substance: HYDROCORTISONE
     Dosage: APPLY THINLY TWICE A DAY AS DIRECTED FOR UP TO 2 WEEKS
  8. HYDROCORTISONE [Concomitant]
     Active Substance: HYDROCORTISONE
     Dosage: APPLY THINLY TWICE A DAY AS DIRECTED FOR UP TO 2 WEEKS
     Route: 065
  9. NYSTATIN [Concomitant]
     Active Substance: NYSTATIN
     Dosage: 1ML TO BE DROPPED INTO THE MOUTH FOUR TIMES A DAY.
     Route: 065
  10. NYSTATIN [Concomitant]
     Active Substance: NYSTATIN
     Dosage: 1ML TO BE DROPPED INTO THE MOUTH FOUR TIMES A DAY.
  11. NYSTATIN [Concomitant]
     Active Substance: NYSTATIN
     Dosage: 1ML TO BE DROPPED INTO THE MOUTH FOUR TIMES A DAY.
  12. DIAZEPAM [Concomitant]
     Active Substance: DIAZEPAM
     Indication: Back pain
     Dosage: ONE AS NEEDED. ONE TO BE TAKEN UP TO THREE TIMES A DAY FOR PAIN
  13. POLYETHYLENE GLYCOLS [Concomitant]
     Active Substance: POLYETHYLENE GLYCOLS
     Indication: Back pain
     Dosage: DISSOLVE CONTENTS OF ONE SACHET IN HALF A GLASS (125ML) OF WATER AND TAKE EACH DAY
  14. ACETAMINOPHEN [Concomitant]
     Active Substance: ACETAMINOPHEN
     Dosage: TWO TO BE TAKEN EVERY 4-6 HOURS UP TO FOUR TIMES A DAY
  15. CODEINE [Concomitant]
     Active Substance: CODEINE
     Dosage: ONE TO TWO TO BE TAKEN EVERY 4-6 HOURS AS REQUIRED
  16. CODEINE [Concomitant]
     Active Substance: CODEINE
     Dosage: ONE TO TWO TO BE TAKEN EVERY 4-6 HOURS AS REQUIRED
     Route: 065
  17. ACETAMINOPHEN\CODEINE PHOSPHATE [Concomitant]
     Active Substance: ACETAMINOPHEN\CODEINE PHOSPHATE
     Indication: Myelodysplastic syndrome
     Dosage: ONE TO BE TAKEN FOUR TIMES A DAY (NO MORE THAN 8 OF ANY STRENGTH CO-CODAMOL IN 24HRS)
  18. ACETAMINOPHEN\CODEINE PHOSPHATE [Concomitant]
     Active Substance: ACETAMINOPHEN\CODEINE PHOSPHATE
     Dosage: ONE TO BE TAKEN FOUR TIMES A DAY (NO MORE THAN 8 OF ANY STRENGTH CO-CODAMOL IN 24HRS)
     Route: 065
  19. COCODAMOL [Concomitant]
     Active Substance: ACETAMINOPHEN\CODEINE PHOSPHATE
     Indication: Myelodysplastic syndrome
     Dosage: ONE TO BE TAKEN FOUR TIMES A DAY (NO MORE THAN 8 OF ANY STRENGTH CO-CODAMOL IN 24HRS)
  20. COCODAMOL [Concomitant]
     Active Substance: ACETAMINOPHEN\CODEINE PHOSPHATE
     Dosage: ONE TO BE TAKEN FOUR TIMES A DAY (NO MORE THAN 8 OF ANY STRENGTH CO-CODAMOL IN 24HRS)
     Route: 065
  21. OXYCODONE HYDROCHLORIDE [Concomitant]
     Active Substance: OXYCODONE HYDROCHLORIDE
     Indication: Myelodysplastic syndrome
     Dosage: 1ML-2MLS TWO-FOUR HOURLY WHEN REQUIRED FOR SEVERE PAIN
  22. OXYCODONE HYDROCHLORIDE [Concomitant]
     Active Substance: OXYCODONE HYDROCHLORIDE
     Dosage: 1ML-2MLS TWO-FOUR HOURLY WHEN REQUIRED FOR SEVERE PAIN
     Route: 065
  23. METOCLOPRAMIDE [Concomitant]
     Active Substance: METOCLOPRAMIDE
     Indication: Myelodysplastic syndrome
     Dosage: ONE TO BE TAKEN THREE TIMES A DAY
  24. METOCLOPRAMIDE [Concomitant]
     Active Substance: METOCLOPRAMIDE
     Dosage: ONE TO BE TAKEN THREE TIMES A DAY
     Route: 065
  25. OXYCODONE [Concomitant]
     Active Substance: OXYCODONE
     Dosage: 10-20MG OVER 24 HOURS VIA SYRINGE DRIVER SUBCUTANEOUSLY, TO BE ADMINISTERED BY DISTRICT NURSE
  26. OXYCODONE [Concomitant]
     Active Substance: OXYCODONE
     Dosage: 10-20MG OVER 24 HOURS VIA SYRINGE DRIVER SUBCUTANEOUSLY, TO BE ADMINISTERED BY DISTRICT NURSE
     Route: 065
  27. LEVOMEPROMAZINE [Concomitant]
     Active Substance: LEVOMEPROMAZINE
     Indication: Myelodysplastic syndrome
     Dosage: 6.25MG-12.5MG SC PRN 4 HOURLY
  28. MIDAZOLAM [Concomitant]
     Active Substance: MIDAZOLAM
     Indication: Myelodysplastic syndrome
     Dosage: 2.5MG-5MG SC PRN 2-4 HOURLY
  29. MIDAZOLAM [Concomitant]
     Active Substance: MIDAZOLAM
     Dosage: 2.5MG-5MG SC PRN 2-4 HOURLY
     Route: 065
  30. GLYCOPYRRONIUM [Concomitant]
     Active Substance: GLYCOPYRRONIUM
     Indication: Myelodysplastic syndrome
     Dosage: 200MCG SC PRN 2-4 HOURLY
  31. GLYCOPYRRONIUM [Concomitant]
     Active Substance: GLYCOPYRRONIUM
     Dosage: 200MCG SC PRN 2-4 HOURLY
     Route: 065

REACTIONS (2)
  - Acute myeloid leukaemia [Fatal]
  - Back pain [Fatal]
